FAERS Safety Report 20964040 (Version 3)
Quarter: 2025Q1

REPORT INFORMATION
  Report Type: Spontaneous
  Country: CA (occurrence: CA)
  Receive Date: 20220615
  Receipt Date: 20250131
  Transmission Date: 20250408
  Serious: Yes (Other)
  Sender: PFIZER
  Company Number: CA-MLMSERVICE-20220602-3585527-1

PATIENT
  Age: 29 Year
  Sex: Female

DRUGS (3)
  1. LIDOCAINE HYDROCHLORIDE [Suspect]
     Active Substance: LIDOCAINE HYDROCHLORIDE
     Indication: Local anaesthesia
  2. LIDOCAINE HYDROCHLORIDE [Suspect]
     Active Substance: LIDOCAINE HYDROCHLORIDE
     Indication: Epidural anaesthesia
  3. EPINEPHRINE [Concomitant]
     Active Substance: EPINEPHRINE
     Indication: Epidural anaesthesia

REACTIONS (3)
  - Embolia cutis medicamentosa [Recovering/Resolving]
  - Injection site necrosis [Recovering/Resolving]
  - Maternal exposure during pregnancy [Unknown]
